FAERS Safety Report 19018045 (Version 4)
Quarter: 2021Q3

REPORT INFORMATION
  Report Type: Report from Study
  Country: US (occurrence: US)
  Receive Date: 20210317
  Receipt Date: 20210702
  Transmission Date: 20211014
  Serious: Yes (Hospitalization, Other)
  Sender: FDA-Public Use
  Company Number: US-SA-2021SA087873

PATIENT
  Age: 60 Year
  Sex: Male

DRUGS (3)
  1. AGALSIDASE BETA [Suspect]
     Active Substance: AGALSIDASE BETA
     Dosage: 60 MG, QOW
     Route: 042
     Dates: start: 20210204
  2. AGALSIDASE BETA [Suspect]
     Active Substance: AGALSIDASE BETA
     Dosage: 60 MG, QOW
     Route: 042
     Dates: start: 20210602
  3. AGALSIDASE BETA [Suspect]
     Active Substance: AGALSIDASE BETA
     Indication: FABRY^S DISEASE
     Dosage: 60 MG, QOW
     Route: 042
     Dates: start: 2017

REACTIONS (4)
  - Vascular access site haemorrhage [Recovered/Resolved]
  - Central venous catheterisation [Unknown]
  - End stage renal disease [Not Recovered/Not Resolved]
  - Vascular access site swelling [Not Recovered/Not Resolved]

NARRATIVE: CASE EVENT DATE: 20210304
